FAERS Safety Report 20628249 (Version 2)
Quarter: 2022Q2

REPORT INFORMATION
  Report Type: Spontaneous
  Country: GB (occurrence: GB)
  Receive Date: 20220323
  Receipt Date: 20220519
  Transmission Date: 20220721
  Serious: Yes (Other)
  Sender: FDA-Public Use
  Company Number: GB-002147023-NVSC2022GB014874

PATIENT
  Age: 42 Year
  Sex: Male

DRUGS (1)
  1. IMATINIB [Suspect]
     Active Substance: IMATINIB
     Indication: Product used for unknown indication
     Dosage: UNK, ONCE A DAY(UNK, QD)
     Route: 065

REACTIONS (8)
  - Retinopathy [Unknown]
  - Vision blurred [Unknown]
  - Headache [Unknown]
  - COVID-19 [Unknown]
  - Anosmia [Unknown]
  - Ageusia [Unknown]
  - Sinusitis [Unknown]
  - Tonsillitis [Unknown]

NARRATIVE: CASE EVENT DATE: 20220117
